FAERS Safety Report 17625390 (Version 5)
Quarter: 2025Q1

REPORT INFORMATION
  Report Type: Spontaneous
  Country: NL (occurrence: NL)
  Receive Date: 20200403
  Receipt Date: 20250203
  Transmission Date: 20250409
  Serious: Yes (Other)
  Sender: AUROBINDO
  Company Number: NL-GILEAD-2020-0454717

PATIENT
  Age: 68 Year
  Sex: Male
  Weight: 88.9 kg

DRUGS (17)
  1. DEXAMETHASONE [Suspect]
     Active Substance: DEXAMETHASONE
     Indication: Chemotherapy
     Dosage: 10 MILLIGRAM, ONCE A DAY
     Route: 042
     Dates: start: 20200114, end: 20200117
  2. DEXAMETHASONE [Suspect]
     Active Substance: DEXAMETHASONE
     Dosage: 10 MILLIGRAM, ONCE A DAY
     Route: 048
     Dates: start: 20200214, end: 20200217
  3. DEXAMETHASONE [Suspect]
     Active Substance: DEXAMETHASONE
     Dosage: 10 MILLIGRAM, ONCE A DAY
     Route: 042
     Dates: start: 20200308, end: 20200308
  4. DEXAMETHASONE [Suspect]
     Active Substance: DEXAMETHASONE
     Dosage: 10 MILLIGRAM, ONCE A DAY
     Route: 042
     Dates: start: 20200311
  5. FLUDARABINE [Suspect]
     Active Substance: FLUDARABINE PHOSPHATE
     Indication: Bone marrow conditioning regimen
     Dosage: 32.5 MILLIGRAM, ONCE A DAY
     Route: 042
     Dates: start: 20200227
  6. AXICABTAGENE CILOLEUCEL [Suspect]
     Active Substance: AXICABTAGENE CILOLEUCEL
     Indication: B-cell lymphoma
     Route: 042
     Dates: start: 20200303, end: 20200303
  7. AXICABTAGENE CILOLEUCEL [Suspect]
     Active Substance: AXICABTAGENE CILOLEUCEL
     Indication: Diffuse large B-cell lymphoma
  8. CYCLOPHOSPHAMIDE [Suspect]
     Active Substance: CYCLOPHOSPHAMIDE
     Indication: Bone marrow conditioning regimen
     Dosage: 1060 MILLIGRAM, ONCE A DAY
     Route: 042
     Dates: start: 20200227
  9. MESNA [Suspect]
     Active Substance: MESNA
     Indication: Prophylaxis
     Dosage: 400 MILLIGRAM, 3 TIMES A DAY (1200 MILLIGRAM, ONCE A DAY)
     Route: 042
     Dates: start: 20200227
  10. ACETAMINOPHEN [Suspect]
     Active Substance: ACETAMINOPHEN
     Indication: Pyrexia
     Route: 048
     Dates: start: 20200303, end: 20200310
  11. ACETAMINOPHEN [Suspect]
     Active Substance: ACETAMINOPHEN
     Route: 048
     Dates: start: 20200310
  12. TOCILIZUMAB [Suspect]
     Active Substance: TOCILIZUMAB
     Indication: Cytokine release syndrome
     Dosage: 699.2 MILLIGRAM, ONCE A DAY
     Route: 042
     Dates: start: 20200306, end: 20200308
  13. OMEPRAZOLE [Concomitant]
     Active Substance: OMEPRAZOLE
     Indication: Product used for unknown indication
     Dosage: 40 MILLIGRAM, ONCE A DAY
     Route: 048
     Dates: start: 20200228
  14. HYDROCHLOROTHIAZIDE [Concomitant]
     Active Substance: HYDROCHLOROTHIAZIDE
     Indication: Diuretic therapy
     Route: 048
     Dates: start: 20200227
  15. LISINOPRIL [Concomitant]
     Active Substance: LISINOPRIL
     Indication: Hypertension
     Route: 048
     Dates: start: 20200227
  16. MAGNESIUM HYDROXIDE [Concomitant]
     Active Substance: MAGNESIUM HYDROXIDE
     Indication: Abdominal pain upper
     Dosage: 724 MILLIGRAM, TWO TIMES A DAY
     Route: 048
     Dates: start: 20100510
  17. POTASSIUM CHLORIDE\SODIUM CHLORIDE [Concomitant]
     Active Substance: POTASSIUM CHLORIDE\SODIUM CHLORIDE
     Indication: Product used for unknown indication
     Route: 065
     Dates: start: 20200309

REACTIONS (11)
  - Neutrophil count decreased [Recovered/Resolved]
  - Cytokine release syndrome [Recovered/Resolved]
  - Neurotoxicity [Recovered/Resolved]
  - Atrial fibrillation [Recovered/Resolved with Sequelae]
  - Dysgeusia [Recovered/Resolved]
  - Abdominal pain upper [Not Recovered/Not Resolved]
  - Hypertension [Recovered/Resolved]
  - Hyperhidrosis [Recovered/Resolved]
  - Hepatic enzyme increased [Recovered/Resolved]
  - Diarrhoea [Recovered/Resolved]
  - Headache [Recovered/Resolved]

NARRATIVE: CASE EVENT DATE: 20200303
